FAERS Safety Report 8750465 (Version 4)
Quarter: 2012Q4

REPORT INFORMATION
  Report Type: Spontaneous
  Country: US (occurrence: None)
  Receive Date: 20120809
  Receipt Date: 20120914
  Transmission Date: 20130627
  Serious: Yes (Hospitalization, Disabling, Other)
  Sender: FDA-Public Use
  Company Number: 2012-001492

PATIENT
  Age: 59 Year
  Sex: Female

DRUGS (32)
  1. ATELVIA [Suspect]
     Indication: OSTEOPOROSIS
     Route: 048
     Dates: start: 20110404, end: 201106
  2. ACTONEL (RISEDRONATE SODIUM) TABLET, 35MG [Suspect]
     Indication: OSTEOPOROSIS
     Route: 048
     Dates: start: 200807
  3. FOSAMAX (ALENDRONATE SODIUM) [Suspect]
     Indication: OSTEOPOROSIS
     Route: 048
     Dates: start: 2003
  4. FOSAMAX (ALENDRONATE SODIUM) [Suspect]
     Indication: OSTEOPOROSIS
     Route: 048
     Dates: end: 20110427
  5. ARIMIDEX (ANASTROZOLE) [Concomitant]
  6. LOSARTAN (LOSARTAN) [Concomitant]
  7. NIASPAN (NICOTINIC ACID) [Concomitant]
  8. LEXAPRO (ESCITALOPRAM OXALATE) [Concomitant]
  9. LIPITOR (ATORVASTATIN CALCIUM) [Concomitant]
  10. GLIMEPIRIDE (GLIMEPIRIDE) [Concomitant]
  11. VAGIFEM (ESTRADIOL) [Concomitant]
  12. PRILOSEC [Concomitant]
  13. AVALIDE (HYDROCHLOROTHIAZIDE, IRBESARTAN) [Concomitant]
  14. ALEVE (NAPROXEN SODIUM) [Concomitant]
  15. ANUSOL HC (HYDROCORTISONE ACETATE) [Concomitant]
  16. CALCARB WITH VITAMIN D (ACALCIUM CARBONATE, VITAMIN D NOS) [Concomitant]
  17. ACIPHEX (RABEPRAZOLE SODIUM) [Concomitant]
  18. NEXIUM /01479302/ (ESOMEPRAZOLE MAGNESIUM) [Concomitant]
  19. ZETIA (EZETIMIBE) [Concomitant]
     Route: 048
     Dates: start: 200807
  20. BELLASPAS (ATROPA BELLADONA, ERGOTAMINE TARTRATE, PHENOBARBITAL) [Concomitant]
     Route: 048
     Dates: start: 2003, end: 201104
  21. TETRACYCLINE (TETRACYCLINE) [Concomitant]
  22. PROTONIX (PANTOPRAZOLE SODIUM SESQUIHYDRATE) [Concomitant]
  23. METROGEL (METRONIDAZOLE) [Concomitant]
  24. CITALOPRAM (CITALOPRAM) [Concomitant]
  25. PROCTOFOAM /00622802/ (PRAMOCAINE HYDROCHLORIDE) [Concomitant]
  26. HYDROCHLOROTHIAZIDE W/LOSARTAN (HYDROCHLOROTHIAZIDE,LOSARTAN) [Concomitant]
  27. EFFEXOR (VENLAFAXINE HYDROCHLORIDE) UNKNOWN [Concomitant]
  28. ACTONEL WITH CALCIUM [Suspect]
     Dosage: calcium daily
     Route: 048
  29. ACTONEL (RISEDRONATE SODIUM) TABLET, 35MG [Suspect]
     Indication: OSTEOPENIA
     Route: 048
     Dates: start: 20031205, end: 20080704
  30. ALENDRONATE (ALENDRONATE SODIUM) [Suspect]
     Indication: OSTEOPENIA
     Route: 048
     Dates: start: 20080629, end: 2010
  31. BONIVA (IBANDRONATE SODIUM) [Suspect]
     Indication: OSTEOPENIA
     Route: 048
     Dates: start: 201102, end: 20110704
  32. AVANDIA [Suspect]
     Indication: DIABETES MELLITUS
     Route: 048
     Dates: end: 201108

REACTIONS (5)
  - Femur fracture [None]
  - Fall [None]
  - Device breakage [None]
  - Radius fracture [None]
  - Fracture displacement [None]
